FAERS Safety Report 6692312-6 (Version None)
Quarter: 2010Q2

REPORT INFORMATION
  Report Type: 
  Country: None (occurrence: None)
  Receive Date: 20100422
  Receipt Date: 20100414
  Transmission Date: 20101027
  Serious: Yes (Hospitalization)
  Sender: FDA-Public Use
  Company Number: US-JNJFOC-20100403792

PATIENT
  Sex: Female

DRUGS (3)
  1. DOXIL [Suspect]
     Indication: MULTIPLE MYELOMA
     Route: 042
  2. REVLIMID [Suspect]
     Indication: MULTIPLE MYELOMA
     Dosage: EVERY 21 OUT OF 28 DAYS
     Route: 048
  3. REVLIMID [Suspect]
     Dosage: FOR 21 DAYS
     Route: 048

REACTIONS (5)
  - ASTHENIA [None]
  - DIARRHOEA [None]
  - FAILURE TO THRIVE [None]
  - PANCYTOPENIA [None]
  - SYNCOPE [None]
